FAERS Safety Report 16160942 (Version 1)
Quarter: 2019Q2

REPORT INFORMATION
  Report Type: Spontaneous
  Country: US (occurrence: US)
  Receive Date: 20190405
  Receipt Date: 20190405
  Transmission Date: 20190711
  Serious: Yes (Hospitalization)
  Sender: FDA-Public Use
  Company Number: PHEH2019US014124

PATIENT
  Sex: Male

DRUGS (3)
  1. METHYLPREDNISOLONE ACETATE. [Suspect]
     Active Substance: METHYLPREDNISOLONE ACETATE
     Indication: IRON DEFICIENCY ANAEMIA
     Dosage: 40 MG, QW
     Route: 042
  2. DIPHENHYDRAMINE. [Suspect]
     Active Substance: DIPHENHYDRAMINE
     Indication: IRON DEFICIENCY ANAEMIA
     Dosage: 25 MG, QW
     Route: 042
  3. DEXAMETHASONE. [Suspect]
     Active Substance: DEXAMETHASONE
     Indication: IRON DEFICIENCY ANAEMIA
     Dosage: 20 MG, QW
     Route: 042

REACTIONS (3)
  - Anaemia [Unknown]
  - Pneumonia [Unknown]
  - Blood iron decreased [Unknown]
